FAERS Safety Report 17028230 (Version 1)
Quarter: 2019Q4

REPORT INFORMATION
  Report Type: Spontaneous
  Country: DE (occurrence: DE)
  Receive Date: 20191113
  Receipt Date: 20191113
  Transmission Date: 20200122
  Serious: Yes (Death, Other)
  Sender: FDA-Public Use
  Company Number: NVSC2019DE018446

PATIENT
  Sex: Female

DRUGS (2)
  1. AFINITOR [Suspect]
     Active Substance: EVEROLIMUS
     Indication: NEUROENDOCRINE TUMOUR
     Dosage: 10 MG
     Route: 065
     Dates: start: 201805
  2. AFINITOR [Suspect]
     Active Substance: EVEROLIMUS
     Dosage: 5 MG
     Route: 065
     Dates: end: 201811

REACTIONS (6)
  - Diabetes mellitus [Not Recovered/Not Resolved]
  - Hyperlipidaemia [Recovering/Resolving]
  - Renal impairment [Recovering/Resolving]
  - Malignant neoplasm progression [Fatal]
  - Blood chromogranin A increased [Unknown]
  - Neuroendocrine tumour [Fatal]

NARRATIVE: CASE EVENT DATE: 201806
